FAERS Safety Report 6753945-1 (Version None)
Quarter: 2010Q2

REPORT INFORMATION
  Report Type: 
  Country: None (occurrence: None)
  Receive Date: 20100603
  Receipt Date: 20100527
  Transmission Date: 20101027
  Serious: Yes (Death)
  Sender: FDA-Public Use
  Company Number: A0852455A

PATIENT
  Sex: Male
  Weight: 75 kg

DRUGS (3)
  1. COMBIVIR [Suspect]
     Route: 048
     Dates: start: 20000101
  2. AZT [Suspect]
     Route: 065
     Dates: start: 20000101
  3. UNSPECIFIED MEDICATIONS [Concomitant]

REACTIONS (3)
  - MUSCLE ATROPHY [None]
  - NON-HODGKIN'S LYMPHOMA [None]
  - WEIGHT DECREASED [None]
